FAERS Safety Report 8011472-8 (Version None)
Quarter: 2011Q4

REPORT INFORMATION
  Report Type: 
  Country: None (occurrence: None)
  Receive Date: 20111222
  Receipt Date: 20111207
  Transmission Date: 20120403
  Serious: Yes (Hospitalization)
  Sender: FDA-Public Use
  Company Number: 2011-549

PATIENT
  Sex: Female

DRUGS (4)
  1. NAROPIN [Suspect]
     Dosage: MG, ONCE/HOUR, INTRATHECAL
     Route: 037
     Dates: start: 20111128
  2. MORPHINE SULFATE [Suspect]
     Dosage: MG, ONCE/HOUR, INTRATHECAL
     Route: 037
     Dates: start: 20111128
  3. PRIALT [Suspect]
     Dosage: 0.02 UG, ONCE/HOUR, INTRATHECAL, 0.04 UG, ONCE/HOUR, INTRATHECAL
     Route: 037
     Dates: start: 20111128, end: 20111205
  4. PRIALT [Suspect]
     Dosage: 0.02 UG, ONCE/HOUR, INTRATHECAL, 0.04 UG, ONCE/HOUR, INTRATHECAL
     Route: 037
     Dates: start: 20111205

REACTIONS (1)
  - PULMONARY EMBOLISM [None]
